FAERS Safety Report 9674825 (Version 2)
Quarter: 2013Q4

REPORT INFORMATION
  Report Type: Report from Study
  Country: PT (occurrence: PT)
  Receive Date: 20131107
  Receipt Date: 20131107
  Transmission Date: 20140711
  Serious: Yes (Other)
  Sender: FDA-Public Use
  Company Number: PHHO2009PT02460

PATIENT
  Sex: 0

DRUGS (2)
  1. FTY 720 [Suspect]
     Indication: MULTIPLE SCLEROSIS
     Dosage: 0.5 MG, QD
     Dates: start: 20070724
  2. INTERFERON BETA-1B [Concomitant]

REACTIONS (1)
  - Basal cell carcinoma [Recovered/Resolved]
